FAERS Safety Report 20616748 (Version 1)
Quarter: 2022Q1

REPORT INFORMATION
  Report Type: Spontaneous
  Country: GB (occurrence: GB)
  Receive Date: 20220321
  Receipt Date: 20220321
  Transmission Date: 20220423
  Serious: Yes (Other)
  Sender: FDA-Public Use
  Company Number: None

PATIENT
  Age: 94 Year
  Sex: Female
  Weight: 65 kg

DRUGS (11)
  1. FAMOTIDINE [Suspect]
     Active Substance: FAMOTIDINE
     Indication: Product used for unknown indication
     Dosage: ONE TO BE TAKEN TWICE DAILY
     Dates: start: 20210709
  2. FAMOTIDINE [Suspect]
     Active Substance: FAMOTIDINE
     Dosage: 20 MILLIGRAM
     Dates: start: 20220314
  3. BUPRENORPHINE [Concomitant]
     Active Substance: BUPRENORPHINE
     Indication: Analgesic therapy
     Dosage: APPLY ONE PATCH EVERY SEVEN DAYS FOR PAIN RELIEF
     Dates: start: 20220124, end: 20220221
  4. DERMOL [Concomitant]
     Active Substance: BENZALKONIUM CHLORIDE\CHLORHEXIDINE HYDROCHLORIDE\ISOPROPYL MYRISTATE\PARAFFIN
     Dosage: UNK, BID APPLY LIBERALLY TWICE DAILY LONG TERM TO BOTH LEGS
     Dates: start: 20201002
  5. IBUPROFEN [Concomitant]
     Active Substance: IBUPROFEN
     Indication: Pain
     Dosage: UNK, TID APPLY 3 TIMES/DAY TO HELP WITH PAIN
     Dates: start: 20220203, end: 20220303
  6. BIMATOPROST\TIMOLOL [Concomitant]
     Active Substance: BIMATOPROST\TIMOLOL
     Dosage: ONE DROP ONCE DAILY
     Dates: start: 20210624
  7. POTASSIUM BICARBONATE\SODIUM ALGINATE [Concomitant]
     Active Substance: POTASSIUM BICARBONATE\SODIUM ALGINATE
     Dosage: 5ML OR 10ML 3 TIMES/DAY
     Dates: start: 20201002
  8. MAGNESIUM HYDROXIDE [Concomitant]
     Active Substance: MAGNESIUM HYDROXIDE
     Dosage: 1X5ML SPOON 3 TIMES/DAY PRN
     Dates: start: 20201002
  9. NAPROXEN [Concomitant]
     Active Substance: NAPROXEN
     Dosage: ONE TO BE TAKEN TWICE DAILY WHEN REQUIRED FOR P
     Dates: start: 20220203, end: 20220203
  10. ALBUTEROL [Concomitant]
     Active Substance: ALBUTEROL
     Dosage: 1 DOSAGE FORM, 1-2 P BD PRN
     Dates: start: 20201002, end: 20220203
  11. ZESTRIL [Concomitant]
     Active Substance: LISINOPRIL
     Dosage: TAKE TWO ONCE DAILY
     Dates: start: 20201002

REACTIONS (1)
  - Skin exfoliation [Recovered/Resolved]

NARRATIVE: CASE EVENT DATE: 20220314
